FAERS Safety Report 6251547-7 (Version None)
Quarter: 2009Q2

REPORT INFORMATION
  Report Type: 
  Country: None (occurrence: None)
  Receive Date: 20090630
  Receipt Date: 20090623
  Transmission Date: 20091009
  Serious: Yes (Hospitalization)
  Sender: FDA-Public Use
  Company Number: DE-WATSON-2009-04803

PATIENT
  Age: 28 Year
  Sex: Female

DRUGS (1)
  1. FERRLECIT [Suspect]
     Indication: HAEMOGLOBIN DECREASED
     Dosage: UNK
     Route: 042
     Dates: start: 20090516, end: 20090516

REACTIONS (2)
  - CARDIOVASCULAR INSUFFICIENCY [None]
  - DRUG ADMINISTRATION ERROR [None]
